FAERS Safety Report 4301771-5 (Version None)
Quarter: 2004Q1

REPORT INFORMATION
  Report Type: 
  Country: None (occurrence: None)
  Receive Date: 20040126
  Receipt Date: 20031007
  Transmission Date: 20041129
  Serious: No
  Sender: FDA-Public Use
  Company Number: USA031049209

PATIENT
  Age: 60 Year
  Sex: Male
  Weight: 78 kg

DRUGS (3)
  1. STRATTERA [Suspect]
     Indication: ATTENTION DEFICIT/HYPERACTIVITY DISORDER
     Dosage: 80 MG/DAY
     Dates: start: 20030701
  2. NEURONTIN [Concomitant]
  3. NAPROXEN [Concomitant]

REACTIONS (4)
  - CONSTIPATION [None]
  - LIBIDO DECREASED [None]
  - NOCTURIA [None]
  - URINARY HESITATION [None]
